FAERS Safety Report 25774211 (Version 1)
Quarter: 2025Q3

REPORT INFORMATION
  Report Type: Spontaneous
  Country: US (occurrence: US)
  Receive Date: 20250908
  Receipt Date: 20250908
  Transmission Date: 20251021
  Serious: No
  Sender: LEXICON PHARMACEUTICALS
  Company Number: US-LEX-000798

PATIENT
  Sex: Male

DRUGS (1)
  1. INPEFA [Suspect]
     Active Substance: SOTAGLIFLOZIN
     Indication: Chronic left ventricular failure
     Route: 048
     Dates: start: 20241108, end: 20250720

REACTIONS (3)
  - Abdominal discomfort [Unknown]
  - Therapy interrupted [Unknown]
  - Product use issue [Unknown]

NARRATIVE: CASE EVENT DATE: 20250101
